FAERS Safety Report 14392416 (Version 1)
Quarter: 2018Q1

REPORT INFORMATION
  Report Type: Spontaneous
  Country: US (occurrence: US)
  Receive Date: 20180112
  Receipt Date: 20180112
  Transmission Date: 20180509
  Serious: Yes (Hospitalization, Other)
  Sender: FDA-Public Use
  Company Number: None

PATIENT
  Age: 68 Year
  Sex: Female
  Weight: 58.05 kg

DRUGS (19)
  1. BENICAR [Concomitant]
     Active Substance: OLMESARTAN MEDOXOMIL
  2. FLONAISE [Concomitant]
  3. A-Z MINERALS [Concomitant]
  4. VITAMIN E [Concomitant]
     Active Substance: .ALPHA.-TOCOPHEROL
  5. NAC [Concomitant]
  6. VITAL REDS [Concomitant]
  7. COMBIVENT [Concomitant]
     Active Substance: ALBUTEROL SULFATE\IPRATROPIUM BROMIDE
  8. PROBIOTICS [Concomitant]
     Active Substance: PROBIOTICS NOS
  9. FISH OIL [Concomitant]
     Active Substance: FISH OIL
  10. ENZYMES [Concomitant]
  11. BONE BROTH PROTEIN POWDER [Concomitant]
  12. HAWTHORNE BERRY POWDER [Concomitant]
  13. PEPTACE FISH PEPTIDES [Concomitant]
  14. LIPOTROPIC [Concomitant]
  15. ALBUTEROL. [Concomitant]
     Active Substance: ALBUTEROL
  16. OLIVE LEAF POWDER [Concomitant]
  17. QUERCETIN COMPLEX [Concomitant]
  18. AZITHROMYCIN ANHYDROUS. [Suspect]
     Active Substance: AZITHROMYCIN ANHYDROUS
     Indication: PNEUMONIA
     Dosage: ?          QUANTITY:2 TABLET(S);?
     Route: 048
     Dates: start: 20171129, end: 20180110
  19. ADVAIR HFA [Concomitant]
     Active Substance: FLUTICASONE PROPIONATE\SALMETEROL XINAFOATE

REACTIONS (10)
  - Influenza [None]
  - Heart rate increased [None]
  - Nasopharyngitis [None]
  - Chest pain [None]
  - Pericardial effusion [None]
  - Palpitations [None]
  - Cough [None]
  - Ill-defined disorder [None]
  - Pneumonia [None]
  - Pyrexia [None]

NARRATIVE: CASE EVENT DATE: 20171202
